FAERS Safety Report 16777004 (Version 18)
Quarter: 2025Q1

REPORT INFORMATION
  Report Type: Spontaneous
  Country: US (occurrence: US)
  Receive Date: 20190905
  Receipt Date: 20250303
  Transmission Date: 20250408
  Serious: Yes (Hospitalization, Other)
  Sender: PFIZER
  Company Number: US-PFIZER INC-2019223955

PATIENT
  Age: 77 Year
  Sex: Female

DRUGS (6)
  1. BOSULIF [Suspect]
     Active Substance: BOSUTINIB MONOHYDRATE
     Indication: Chronic myeloid leukaemia
     Dosage: 200 MG (2 TABLETS), 2X/DAY
     Route: 048
  2. BOSULIF [Suspect]
     Active Substance: BOSUTINIB MONOHYDRATE
     Dosage: 100 MG (1 TAB), 1XDAY (ONE TIME EACH DAY WITH DINNER. SWALLOW WHOLE)
     Route: 048
  3. BOSULIF [Suspect]
     Active Substance: BOSUTINIB MONOHYDRATE
     Dosage: 300 MG, DAILY (2 TAB MORNING, 1 EVERY EVENING)
     Route: 048
  4. BOSULIF [Suspect]
     Active Substance: BOSUTINIB MONOHYDRATE
  5. BOSULIF [Suspect]
     Active Substance: BOSUTINIB MONOHYDRATE
     Dosage: 300 MG, DAILY (2 TAB IN AM AND 1 TAB IN PM)
  6. BOSULIF [Suspect]
     Active Substance: BOSUTINIB MONOHYDRATE

REACTIONS (18)
  - Nausea [Unknown]
  - Vomiting [Unknown]
  - Fall [Unknown]
  - Aortic surgery [Unknown]
  - Shoulder arthroplasty [Unknown]
  - Hernia [Unknown]
  - Hernia hiatus repair [Unknown]
  - Near death experience [Unknown]
  - Off label use [Unknown]
  - Diarrhoea [Unknown]
  - Hypersensitivity [Unknown]
  - Urticaria [Unknown]
  - Pruritus [Unknown]
  - Lip swelling [Unknown]
  - Hypoaesthesia oral [Unknown]
  - Feeling hot [Unknown]
  - Asthenia [Recovered/Resolved]
  - Immune system disorder [Unknown]

NARRATIVE: CASE EVENT DATE: 20240101
